FAERS Safety Report 20969211 (Version 45)
Quarter: 2023Q1

REPORT INFORMATION
  Report Type: Report from Study
  Country: GB (occurrence: GB)
  Receive Date: 20220616
  Receipt Date: 20230120
  Transmission Date: 20230418
  Serious: Yes (Death, Hospitalization, Congenital Anomaly, Other)
  Sender: FDA-Public Use
  Company Number: GB-009507513-1806GBR012007

PATIENT
  Age: 3 Month
  Sex: Male

DRUGS (333)
  1. RITONAVIR [Suspect]
     Active Substance: RITONAVIR
     Indication: Maternal exposure timing unspecified
     Route: 064
  2. RITONAVIR [Suspect]
     Active Substance: RITONAVIR
     Indication: Maternal exposure timing unspecified
     Dosage: UNK
     Route: 064
     Dates: start: 20100610
  3. RITONAVIR [Suspect]
     Active Substance: RITONAVIR
     Indication: Maternal exposure timing unspecified
     Dosage: UNK
     Dates: start: 20100610
  4. RITONAVIR [Suspect]
     Active Substance: RITONAVIR
     Indication: Maternal exposure timing unspecified
     Dosage: MATERNAL DOSE: UNK
  5. RITONAVIR [Suspect]
     Active Substance: RITONAVIR
     Indication: Maternal exposure timing unspecified
     Dosage: UNK
     Dates: start: 20100610
  6. RITONAVIR [Suspect]
     Active Substance: RITONAVIR
     Indication: Maternal exposure timing unspecified
     Dosage: UNK
     Dates: start: 20100610
  7. RITONAVIR [Suspect]
     Active Substance: RITONAVIR
     Indication: Maternal exposure timing unspecified
     Dosage: UNK
     Route: 064
     Dates: start: 20100610
  8. RITONAVIR [Suspect]
     Active Substance: RITONAVIR
     Indication: Maternal exposure timing unspecified
     Dosage: MATERNAL DOSE: UNK
  9. RITONAVIR [Suspect]
     Active Substance: RITONAVIR
     Indication: Maternal exposure timing unspecified
     Dosage: UNK
     Dates: start: 20100610
  10. RITONAVIR [Suspect]
     Active Substance: RITONAVIR
     Indication: Maternal exposure timing unspecified
     Dosage: MATERNAL DOSE: UNK
  11. RITONAVIR [Suspect]
     Active Substance: RITONAVIR
     Indication: Maternal exposure timing unspecified
     Dosage: MATERNAL DOSE: UNK
  12. RITONAVIR [Suspect]
     Active Substance: RITONAVIR
     Indication: Maternal exposure timing unspecified
     Dosage: MATERNAL DOSE: UNK
  13. RITONAVIR [Suspect]
     Active Substance: RITONAVIR
     Indication: Maternal exposure timing unspecified
     Dosage: UNK
     Dates: start: 20100610
  14. RITONAVIR [Suspect]
     Active Substance: RITONAVIR
     Indication: Maternal exposure timing unspecified
     Dosage: UNK
     Dates: start: 20100610
  15. RITONAVIR [Suspect]
     Active Substance: RITONAVIR
     Indication: Maternal exposure timing unspecified
     Dosage: UNK
     Route: 064
     Dates: start: 20100610
  16. RITONAVIR [Suspect]
     Active Substance: RITONAVIR
     Indication: Maternal exposure timing unspecified
     Dosage: UNK
     Route: 064
     Dates: start: 20100610
  17. RITONAVIR [Suspect]
     Active Substance: RITONAVIR
     Indication: Maternal exposure timing unspecified
     Dosage: UNK
     Dates: start: 20100610
  18. RITONAVIR [Suspect]
     Active Substance: RITONAVIR
     Indication: Maternal exposure timing unspecified
     Dosage: MATERNAL DOSE: UNK
  19. RITONAVIR [Suspect]
     Active Substance: RITONAVIR
     Indication: Maternal exposure timing unspecified
     Dosage: UNK
     Dates: start: 20100610
  20. RITONAVIR [Suspect]
     Active Substance: RITONAVIR
     Indication: Maternal exposure timing unspecified
     Dosage: MATERNAL DOSE: UNK
  21. KALETRA [Suspect]
     Active Substance: LOPINAVIR\RITONAVIR
     Indication: Maternal exposure timing unspecified
     Route: 064
  22. TRUVADA [Suspect]
     Active Substance: EMTRICITABINE\TENOFOVIR DISOPROXIL FUMARATE
     Indication: Maternal exposure timing unspecified
     Route: 064
  23. TRUVADA [Suspect]
     Active Substance: EMTRICITABINE\TENOFOVIR DISOPROXIL FUMARATE
     Indication: Maternal exposure timing unspecified
     Dosage: MATERNAL DOSE: 1 DOSAGE FORM QD 1 TABLET/CAPSULE
     Route: 064
  24. TRUVADA [Suspect]
     Active Substance: EMTRICITABINE\TENOFOVIR DISOPROXIL FUMARATE
     Indication: Maternal exposure timing unspecified
     Dosage: MATERNAL DOSE: 1 DF QD (1 DOSAGE FORM, QD)
     Route: 064
  25. TRUVADA [Suspect]
     Active Substance: EMTRICITABINE\TENOFOVIR DISOPROXIL FUMARATE
     Indication: Maternal exposure timing unspecified
     Dosage: (1 DOSAGE FORM, QD;1 TABLET/CAPSULE, QD)
     Route: 048
     Dates: start: 20180205
  26. TRUVADA [Suspect]
     Active Substance: EMTRICITABINE\TENOFOVIR DISOPROXIL FUMARATE
     Indication: Maternal exposure timing unspecified
     Dosage: 1 UG/LITRE, QD (1 TABLET/CAPSULE)
     Route: 064
     Dates: start: 20171006, end: 20180205
  27. TRUVADA [Suspect]
     Active Substance: EMTRICITABINE\TENOFOVIR DISOPROXIL FUMARATE
     Indication: Maternal exposure timing unspecified
     Dosage: MATERNAL DOSE: 1 DF, QD
     Dates: start: 20180205
  28. TRUVADA [Suspect]
     Active Substance: EMTRICITABINE\TENOFOVIR DISOPROXIL FUMARATE
     Indication: Maternal exposure timing unspecified
     Dosage: MATERNAL DOSE: 1 DF, QD
     Dates: start: 20171006, end: 20180205
  29. TRUVADA [Suspect]
     Active Substance: EMTRICITABINE\TENOFOVIR DISOPROXIL FUMARATE
     Indication: Maternal exposure timing unspecified
     Dosage: 1 DOSAGE FORM, QD
     Route: 064
     Dates: start: 20180205
  30. TRUVADA [Suspect]
     Active Substance: EMTRICITABINE\TENOFOVIR DISOPROXIL FUMARATE
     Indication: Maternal exposure timing unspecified
     Dosage: 1 DF, QD
     Route: 064
     Dates: start: 20171006
  31. TRUVADA [Suspect]
     Active Substance: EMTRICITABINE\TENOFOVIR DISOPROXIL FUMARATE
     Indication: Maternal exposure timing unspecified
     Dosage: MATERNAL DOSE: 1 DF, QD
     Dates: start: 20180205
  32. TRUVADA [Suspect]
     Active Substance: EMTRICITABINE\TENOFOVIR DISOPROXIL FUMARATE
     Indication: Maternal exposure timing unspecified
     Dosage: 1 DOSAGE FORM QD 1 TABLET/CAPSULE
     Route: 064
  33. TRUVADA [Suspect]
     Active Substance: EMTRICITABINE\TENOFOVIR DISOPROXIL FUMARATE
     Indication: Maternal exposure timing unspecified
     Dosage: MATERNAL DOSE: 1 DF, QD
     Dates: start: 20171006, end: 20180205
  34. TRUVADA [Suspect]
     Active Substance: EMTRICITABINE\TENOFOVIR DISOPROXIL FUMARATE
     Indication: Maternal exposure timing unspecified
     Dosage: 1 DF QD (1 DOSAGE FORM, QD)
     Route: 064
  35. TRUVADA [Suspect]
     Active Substance: EMTRICITABINE\TENOFOVIR DISOPROXIL FUMARATE
     Indication: Maternal exposure timing unspecified
     Dosage: MATERNAL DOSE: 1 DF, QD
     Route: 064
     Dates: start: 20171006, end: 20180205
  36. TRUVADA [Suspect]
     Active Substance: EMTRICITABINE\TENOFOVIR DISOPROXIL FUMARATE
     Indication: Maternal exposure timing unspecified
     Dosage: MATERNAL DOSE: 1 DF, QD
     Dates: start: 20171006, end: 20180205
  37. TRUVADA [Suspect]
     Active Substance: EMTRICITABINE\TENOFOVIR DISOPROXIL FUMARATE
     Indication: Maternal exposure timing unspecified
     Dosage: 1 DF QD (1 DOSAGE FORM, QD)
     Route: 064
  38. TRUVADA [Suspect]
     Active Substance: EMTRICITABINE\TENOFOVIR DISOPROXIL FUMARATE
     Indication: Maternal exposure timing unspecified
     Dosage: 1 DOSAGE FORM QD 1 TABLET/CAPSULE
     Route: 064
  39. TRUVADA [Suspect]
     Active Substance: EMTRICITABINE\TENOFOVIR DISOPROXIL FUMARATE
     Indication: Maternal exposure timing unspecified
     Dosage: MATERNAL DOSE: 1 DF, QD
     Dates: start: 20180205
  40. TRUVADA [Suspect]
     Active Substance: EMTRICITABINE\TENOFOVIR DISOPROXIL FUMARATE
     Indication: Maternal exposure timing unspecified
     Dosage: MATERNAL DOSE: 1 DF, QD
     Dates: start: 20171006, end: 20180205
  41. TRUVADA [Suspect]
     Active Substance: EMTRICITABINE\TENOFOVIR DISOPROXIL FUMARATE
     Indication: Maternal exposure timing unspecified
     Dosage: MATERNAL DOSE: 1 DF, QD
     Dates: start: 20180205
  42. TRUVADA [Suspect]
     Active Substance: EMTRICITABINE\TENOFOVIR DISOPROXIL FUMARATE
     Indication: Maternal exposure timing unspecified
     Dosage: 1 DF QD (1 DOSAGE FORM, QD)
     Route: 064
  43. TRUVADA [Suspect]
     Active Substance: EMTRICITABINE\TENOFOVIR DISOPROXIL FUMARATE
     Indication: Maternal exposure timing unspecified
     Dosage: 1 DOSAGE FORM QD 1 TABLET/CAPSULE
     Route: 064
  44. INSULIN ASPART [Suspect]
     Active Substance: INSULIN ASPART
     Indication: Maternal exposure timing unspecified
     Route: 064
  45. INSULIN ASPART [Suspect]
     Active Substance: INSULIN ASPART
     Indication: Maternal exposure timing unspecified
     Dosage: UNK
     Route: 064
  46. INSULIN ASPART [Suspect]
     Active Substance: INSULIN ASPART
     Indication: Maternal exposure timing unspecified
     Dosage: MATERNAL DOSE: UNK
     Route: 064
  47. INSULIN ASPART [Suspect]
     Active Substance: INSULIN ASPART
     Indication: Maternal exposure timing unspecified
     Dosage: MATERNAL DOSE: UNK
     Route: 064
  48. INSULIN ASPART [Suspect]
     Active Substance: INSULIN ASPART
     Indication: Maternal exposure timing unspecified
     Dosage: UNK
     Route: 064
  49. INSULIN ASPART [Suspect]
     Active Substance: INSULIN ASPART
     Indication: Maternal exposure timing unspecified
     Dosage: MATERNAL DOSE: UNK
  50. INSULIN ASPART [Suspect]
     Active Substance: INSULIN ASPART
     Indication: Maternal exposure timing unspecified
     Dosage: MATERNAL DOSE: UNK
     Route: 064
  51. INSULIN ASPART [Suspect]
     Active Substance: INSULIN ASPART
     Indication: Maternal exposure timing unspecified
     Dosage: MATERNAL DOSE: UNK
     Route: 064
  52. INSULIN ASPART [Suspect]
     Active Substance: INSULIN ASPART
     Indication: Maternal exposure timing unspecified
     Dosage: UNK
     Route: 064
  53. INSULIN ASPART [Suspect]
     Active Substance: INSULIN ASPART
     Indication: Maternal exposure timing unspecified
     Dosage: MATERNAL DOSE: UNK
  54. INSULIN ASPART [Suspect]
     Active Substance: INSULIN ASPART
     Indication: Maternal exposure timing unspecified
     Dosage: UNK
     Route: 064
  55. INSULIN ASPART [Suspect]
     Active Substance: INSULIN ASPART
     Indication: Maternal exposure timing unspecified
     Dosage: UNK
     Route: 064
  56. INSULIN ASPART [Suspect]
     Active Substance: INSULIN ASPART
     Indication: Maternal exposure timing unspecified
     Dosage: MATERNAL DOSE: UNK
     Route: 064
  57. INSULIN ASPART [Suspect]
     Active Substance: INSULIN ASPART
     Indication: Maternal exposure timing unspecified
     Dosage: UNK
     Route: 064
  58. INSULIN ASPART [Suspect]
     Active Substance: INSULIN ASPART
     Indication: Maternal exposure timing unspecified
     Dosage: MATERNAL DOSE: UNK
     Route: 064
  59. INSULIN ASPART [Suspect]
     Active Substance: INSULIN ASPART
     Indication: Maternal exposure timing unspecified
     Dosage: UNK
     Route: 064
  60. INSULIN ASPART [Suspect]
     Active Substance: INSULIN ASPART
     Indication: Maternal exposure timing unspecified
     Dosage: UNK
     Route: 064
  61. INSULIN ASPART [Suspect]
     Active Substance: INSULIN ASPART
     Indication: Maternal exposure timing unspecified
     Dosage: MATERNAL DOSE: UNK
  62. INSULIN ASPART [Suspect]
     Active Substance: INSULIN ASPART
     Indication: Maternal exposure timing unspecified
     Dosage: UNK
     Route: 064
  63. INSULIN ASPART [Suspect]
     Active Substance: INSULIN ASPART
     Indication: Maternal exposure timing unspecified
     Dosage: MATERNAL DOSE: UNK
     Route: 064
  64. INSULIN ASPART [Suspect]
     Active Substance: INSULIN ASPART
     Indication: Maternal exposure timing unspecified
     Dosage: UNK
     Route: 064
  65. INSULIN ASPART [Suspect]
     Active Substance: INSULIN ASPART
     Indication: Maternal exposure timing unspecified
     Dosage: UNK
     Route: 064
  66. INSULIN ASPART [Suspect]
     Active Substance: INSULIN ASPART
     Indication: Maternal exposure timing unspecified
     Dosage: MATERNAL DOSE: UNK
     Route: 064
  67. INSULIN ASPART [Suspect]
     Active Substance: INSULIN ASPART
     Indication: Maternal exposure timing unspecified
     Dosage: MATERNAL DOSE: UNK
  68. LAMIVUDINE [Suspect]
     Active Substance: LAMIVUDINE
     Indication: Maternal exposure timing unspecified
     Route: 064
  69. LAMIVUDINE [Suspect]
     Active Substance: LAMIVUDINE
     Indication: Maternal exposure timing unspecified
     Dosage: MATERNAL DOSE: 300 MG ORAL
     Route: 064
     Dates: start: 20090101, end: 20100610
  70. LAMIVUDINE [Suspect]
     Active Substance: LAMIVUDINE
     Indication: Maternal exposure timing unspecified
     Dosage: MATERNAL DOSE: 300 MG
     Route: 064
     Dates: start: 20090101, end: 20100610
  71. LAMIVUDINE [Suspect]
     Active Substance: LAMIVUDINE
     Indication: Maternal exposure timing unspecified
     Dosage: MATERNAL DOSE: 300 MG
     Route: 064
     Dates: start: 20090101, end: 20100610
  72. LAMIVUDINE [Suspect]
     Active Substance: LAMIVUDINE
     Indication: Maternal exposure timing unspecified
     Dosage: MATERNAL DOSE: 300 MG
     Route: 064
     Dates: start: 20090101, end: 20100610
  73. LAMIVUDINE [Suspect]
     Active Substance: LAMIVUDINE
     Indication: Maternal exposure timing unspecified
     Dosage: MATERNAL DOSE: 300 MG
     Route: 064
     Dates: start: 20090101, end: 20100610
  74. EFAVIRENZ [Suspect]
     Active Substance: EFAVIRENZ
     Indication: Maternal exposure timing unspecified
     Route: 064
  75. EFAVIRENZ [Suspect]
     Active Substance: EFAVIRENZ
     Indication: Maternal exposure timing unspecified
     Dosage: 1 UG/LITRE, QD (1 TABLET/CAPSULE)
     Route: 064
     Dates: start: 20171006, end: 20180205
  76. EFAVIRENZ [Suspect]
     Active Substance: EFAVIRENZ
     Indication: Maternal exposure timing unspecified
     Dosage: MATERNAL DOSE: 1 DF, QD
     Route: 064
     Dates: start: 20171006, end: 20180205
  77. EFAVIRENZ [Suspect]
     Active Substance: EFAVIRENZ
     Indication: Maternal exposure timing unspecified
     Dosage: MATERNAL DOSE: 1 DF, QD
  78. EFAVIRENZ [Suspect]
     Active Substance: EFAVIRENZ
     Indication: Maternal exposure timing unspecified
     Dosage: 1 DOSAGE FORM, QD
     Route: 064
  79. EFAVIRENZ [Suspect]
     Active Substance: EFAVIRENZ
     Indication: Maternal exposure timing unspecified
     Dosage: UNK
     Route: 064
  80. EFAVIRENZ [Suspect]
     Active Substance: EFAVIRENZ
     Indication: Maternal exposure timing unspecified
     Dosage: MATERNAL DOSE: 1 UG/LITRE, QD (1 TABLET/CAPSULE)
     Route: 064
     Dates: start: 20171006
  81. EFAVIRENZ [Suspect]
     Active Substance: EFAVIRENZ
     Indication: Maternal exposure timing unspecified
     Dosage: 1 DOSAGE FORM, QD
     Route: 064
     Dates: start: 20180205
  82. EFAVIRENZ [Suspect]
     Active Substance: EFAVIRENZ
     Indication: Maternal exposure timing unspecified
     Dosage: 1 DOSAGE FORM
     Route: 064
     Dates: start: 20171006
  83. EFAVIRENZ [Suspect]
     Active Substance: EFAVIRENZ
     Indication: Maternal exposure timing unspecified
     Dosage: MATERNAL DOSE: 1 DF, QD
  84. EFAVIRENZ [Suspect]
     Active Substance: EFAVIRENZ
     Indication: Maternal exposure timing unspecified
     Dosage: MATERNAL DOSE: 1 DF, QD
     Route: 064
     Dates: start: 20171006, end: 20180205
  85. EFAVIRENZ [Suspect]
     Active Substance: EFAVIRENZ
     Indication: Maternal exposure timing unspecified
     Dosage: 1 UG/LITRE, QD (1 TABLET/CAPSULE)
     Route: 064
     Dates: start: 20171006
  86. EFAVIRENZ [Suspect]
     Active Substance: EFAVIRENZ
     Indication: Maternal exposure timing unspecified
     Dosage: UNK
     Route: 064
  87. EMTRICITABINE\TENOFOVIR DISOPROXIL [Suspect]
     Active Substance: EMTRICITABINE\TENOFOVIR DISOPROXIL
     Indication: Maternal exposure timing unspecified
     Route: 064
  88. EMTRICITABINE\TENOFOVIR DISOPROXIL [Suspect]
     Active Substance: EMTRICITABINE\TENOFOVIR DISOPROXIL
     Indication: Maternal exposure timing unspecified
     Dosage: MATERNAL DOSE: 1 DF, QD
     Dates: start: 20180205
  89. EMTRICITABINE\TENOFOVIR DISOPROXIL [Suspect]
     Active Substance: EMTRICITABINE\TENOFOVIR DISOPROXIL
     Indication: Maternal exposure timing unspecified
     Dosage: MATERNAL DOSE: 1 DF, QD
     Dates: start: 20171006, end: 20180205
  90. EMTRICITABINE\TENOFOVIR DISOPROXIL [Suspect]
     Active Substance: EMTRICITABINE\TENOFOVIR DISOPROXIL
     Indication: Maternal exposure timing unspecified
     Dosage: 1 DOSAGE FORM, QD, 1 TABLET/CAPSULE, DAILY
     Route: 048
     Dates: start: 20171006
  91. EMTRICITABINE\TENOFOVIR DISOPROXIL [Suspect]
     Active Substance: EMTRICITABINE\TENOFOVIR DISOPROXIL
     Indication: Maternal exposure timing unspecified
     Dosage: MATERNAL DOSE: 1 DOSAGE FORM
  92. EMTRICITABINE\TENOFOVIR DISOPROXIL [Suspect]
     Active Substance: EMTRICITABINE\TENOFOVIR DISOPROXIL
     Indication: Maternal exposure timing unspecified
     Dosage: MATERNAL DOSE: 1 DF, QD
     Dates: start: 20180205
  93. EMTRICITABINE\TENOFOVIR DISOPROXIL [Suspect]
     Active Substance: EMTRICITABINE\TENOFOVIR DISOPROXIL
     Indication: Maternal exposure timing unspecified
     Dosage: MATERNAL DOSE: 1 DF, QD
     Dates: start: 20180205
  94. EMTRICITABINE\TENOFOVIR DISOPROXIL [Suspect]
     Active Substance: EMTRICITABINE\TENOFOVIR DISOPROXIL
     Indication: Maternal exposure timing unspecified
     Dosage: MATERNAL DOSE: 1 DF, QD
     Dates: start: 20180205
  95. EMTRICITABINE\TENOFOVIR DISOPROXIL [Suspect]
     Active Substance: EMTRICITABINE\TENOFOVIR DISOPROXIL
     Indication: Maternal exposure timing unspecified
     Dosage: MATERNAL DOSE: 1 DF, QD
     Dates: start: 20180205
  96. EMTRICITABINE\TENOFOVIR DISOPROXIL [Suspect]
     Active Substance: EMTRICITABINE\TENOFOVIR DISOPROXIL
     Indication: Maternal exposure timing unspecified
     Dosage: MATERNAL DOSE: 1 DF, QD
     Dates: start: 20180205
  97. EMTRICITABINE\TENOFOVIR DISOPROXIL [Suspect]
     Active Substance: EMTRICITABINE\TENOFOVIR DISOPROXIL
     Indication: Maternal exposure timing unspecified
     Dosage: MATERNAL DOSE: 1 DF, QD
     Dates: start: 20180205
  98. EMTRICITABINE\TENOFOVIR DISOPROXIL [Suspect]
     Active Substance: EMTRICITABINE\TENOFOVIR DISOPROXIL
     Indication: Maternal exposure timing unspecified
     Dosage: MATERNAL DOSE: 1 DF, QD
     Dates: start: 20180205
  99. FOLATE SODIUM [Suspect]
     Active Substance: FOLATE SODIUM
     Indication: Maternal exposure timing unspecified
     Route: 064
  100. FOLATE SODIUM [Suspect]
     Active Substance: FOLATE SODIUM
     Indication: Maternal exposure timing unspecified
     Dosage: UNK
     Route: 064
  101. FOLATE SODIUM [Suspect]
     Active Substance: FOLATE SODIUM
     Indication: Maternal exposure timing unspecified
     Dosage: MATERNAL DOSE: UNKNOWN
     Route: 064
  102. FOLATE SODIUM [Suspect]
     Active Substance: FOLATE SODIUM
     Indication: Maternal exposure timing unspecified
     Dosage: UNK
     Route: 064
  103. FOLATE SODIUM [Suspect]
     Active Substance: FOLATE SODIUM
     Indication: Maternal exposure timing unspecified
     Dosage: MATERNAL DOSE: UNK
  104. FOLATE SODIUM [Suspect]
     Active Substance: FOLATE SODIUM
     Indication: Maternal exposure timing unspecified
     Dosage: UNK
     Route: 064
  105. FOLATE SODIUM [Suspect]
     Active Substance: FOLATE SODIUM
     Indication: Maternal exposure timing unspecified
     Dosage: UNK (MATERNAL DOSE: UNKNOWN)
     Route: 064
  106. FOLATE SODIUM [Suspect]
     Active Substance: FOLATE SODIUM
     Indication: Maternal exposure timing unspecified
     Dosage: MATERNAL DOSE: UNK
  107. FOLATE SODIUM [Suspect]
     Active Substance: FOLATE SODIUM
     Indication: Maternal exposure timing unspecified
     Dosage: MATERNAL DOSE: UNKNOWN
     Route: 064
  108. FOLATE SODIUM [Suspect]
     Active Substance: FOLATE SODIUM
     Indication: Maternal exposure timing unspecified
     Dosage: UNK
     Route: 064
  109. FOLATE SODIUM [Suspect]
     Active Substance: FOLATE SODIUM
     Indication: Maternal exposure timing unspecified
     Dosage: MATERNAL DOSE: UNK
  110. FOLATE SODIUM [Suspect]
     Active Substance: FOLATE SODIUM
     Indication: Maternal exposure timing unspecified
     Dosage: UNK
     Route: 064
  111. FOLATE SODIUM [Suspect]
     Active Substance: FOLATE SODIUM
     Indication: Maternal exposure timing unspecified
     Dosage: UNK
     Route: 064
  112. FOLATE SODIUM [Suspect]
     Active Substance: FOLATE SODIUM
     Indication: Maternal exposure timing unspecified
     Dosage: MATERNAL DOSE: UNKNOWN
     Route: 064
  113. FOLATE SODIUM [Suspect]
     Active Substance: FOLATE SODIUM
     Indication: Maternal exposure timing unspecified
     Dosage: UNK (MATERNAL DOSE: UNKNOWN)
     Route: 064
  114. FOLATE SODIUM [Suspect]
     Active Substance: FOLATE SODIUM
     Indication: Maternal exposure timing unspecified
     Dosage: MATERNAL DOSE: UNK
  115. FOLATE SODIUM [Suspect]
     Active Substance: FOLATE SODIUM
     Indication: Maternal exposure timing unspecified
     Dosage: UNK
     Route: 064
  116. FOLATE SODIUM [Suspect]
     Active Substance: FOLATE SODIUM
     Indication: Maternal exposure timing unspecified
     Dosage: UNK
     Route: 064
  117. FOLATE SODIUM [Suspect]
     Active Substance: FOLATE SODIUM
     Indication: Maternal exposure timing unspecified
     Dosage: MATERNAL DOSE: UNKNOWN
     Route: 064
  118. FOLATE SODIUM [Suspect]
     Active Substance: FOLATE SODIUM
     Indication: Maternal exposure timing unspecified
     Dosage: UNK (MATERNAL DOSE: UNKNOWN)
     Route: 064
  119. FOLIC ACID [Suspect]
     Active Substance: FOLIC ACID
     Indication: Maternal exposure timing unspecified
     Route: 064
  120. FOLIC ACID [Suspect]
     Active Substance: FOLIC ACID
     Indication: Maternal exposure timing unspecified
     Dosage: MATERNAL DOSE: UNK
     Route: 064
  121. FOLIC ACID [Suspect]
     Active Substance: FOLIC ACID
     Indication: Maternal exposure timing unspecified
     Dosage: MATERNAL DOSE: UNK
     Route: 064
  122. FOLIC ACID [Suspect]
     Active Substance: FOLIC ACID
     Indication: Maternal exposure timing unspecified
     Dosage: 1 DF, QD (1 TABLET/CAPSULE, DAILY)
     Route: 064
  123. FOLIC ACID [Suspect]
     Active Substance: FOLIC ACID
     Indication: Maternal exposure timing unspecified
     Dosage: MATERNAL DOSE: UNK
     Route: 064
  124. FOLIC ACID [Suspect]
     Active Substance: FOLIC ACID
     Indication: Maternal exposure timing unspecified
     Dosage: 1 DF, QD (1 TABLET/CAPSULE, DAILY)
     Route: 064
  125. FOLIC ACID [Suspect]
     Active Substance: FOLIC ACID
     Indication: Maternal exposure timing unspecified
     Dosage: MATERNAL DOSE: UNK
     Route: 064
  126. FOLIC ACID [Suspect]
     Active Substance: FOLIC ACID
     Indication: Maternal exposure timing unspecified
     Dosage: MATERNAL DOSE: UNK
     Route: 064
  127. FOLIC ACID [Suspect]
     Active Substance: FOLIC ACID
     Indication: Maternal exposure timing unspecified
     Dosage: MATERNAL DOSE: UNK
     Route: 064
  128. FOLIC ACID [Suspect]
     Active Substance: FOLIC ACID
     Indication: Maternal exposure timing unspecified
     Dosage: 1 DF, QD (1 TABLET/CAPSULE, DAILY)
     Route: 064
  129. FOLIC ACID [Suspect]
     Active Substance: FOLIC ACID
     Indication: Maternal exposure timing unspecified
     Dosage: 1 DF, QD (1 TABLET/CAPSULE, DAILY)
     Route: 064
  130. FOLIC ACID [Suspect]
     Active Substance: FOLIC ACID
     Indication: Maternal exposure timing unspecified
     Dosage: MATERNAL DOSE: UNK
     Route: 064
  131. EFAVIRENZ [Suspect]
     Active Substance: EFAVIRENZ
     Indication: Maternal exposure timing unspecified
     Route: 064
  132. EFAVIRENZ [Suspect]
     Active Substance: EFAVIRENZ
     Indication: Maternal exposure timing unspecified
     Dosage: MATERNAL DOSE: 1 DOSAGE FORM, QD
     Route: 064
  133. EFAVIRENZ [Suspect]
     Active Substance: EFAVIRENZ
     Indication: Maternal exposure timing unspecified
     Dosage: MATERNAL DOSE: 1 DF, QD (1 TABLET/CAPSULE)
     Route: 064
     Dates: start: 20171006
  134. EFAVIRENZ [Suspect]
     Active Substance: EFAVIRENZ
     Indication: Maternal exposure timing unspecified
     Dosage: MATERNAL DOSE:1 DF, QD(1TABLET/CAPSULE,DAILY)
     Route: 064
     Dates: start: 20171006, end: 20180205
  135. EFAVIRENZ [Suspect]
     Active Substance: EFAVIRENZ
     Indication: Maternal exposure timing unspecified
     Dosage: 1 DF, QD; 1 TABLET/CAPSULE,DAILY
     Route: 064
     Dates: start: 20171006
  136. EFAVIRENZ [Suspect]
     Active Substance: EFAVIRENZ
     Indication: Maternal exposure timing unspecified
     Dosage: 1 DOSAGE FORM, QD (1 TABLET/CAPSULE, DAILY)
     Route: 064
     Dates: start: 20171006
  137. EFAVIRENZ [Suspect]
     Active Substance: EFAVIRENZ
     Indication: Maternal exposure timing unspecified
     Dosage: MATERNAL DOSE: 1 DOSAGE FORM, QD (1 TABLET/CAPSULE)
     Route: 064
     Dates: start: 20171006
  138. EFAVIRENZ [Suspect]
     Active Substance: EFAVIRENZ
     Indication: Maternal exposure timing unspecified
     Dates: start: 20171006, end: 20180205
  139. EFAVIRENZ [Suspect]
     Active Substance: EFAVIRENZ
     Indication: Maternal exposure timing unspecified
     Dosage: 1 DOSAGE FORM, QD (1 TABLET/CAPSULE, DAILY)
     Route: 064
     Dates: start: 20171006
  140. EFAVIRENZ [Suspect]
     Active Substance: EFAVIRENZ
     Indication: Maternal exposure timing unspecified
     Dosage: 1 DOSAGE FORM, QD (1 TABLET/CAPSULE, DAILY)
     Route: 064
     Dates: start: 20171006
  141. ZIDOVUDINE [Suspect]
     Active Substance: ZIDOVUDINE
     Indication: Maternal exposure timing unspecified
     Route: 064
  142. ZIDOVUDINE [Suspect]
     Active Substance: ZIDOVUDINE
     Indication: Maternal exposure timing unspecified
     Dosage: MATERNAL DOSE: 800 MG, QD
     Route: 064
     Dates: start: 20100610, end: 20100610
  143. ZIDOVUDINE [Suspect]
     Active Substance: ZIDOVUDINE
     Indication: Maternal exposure timing unspecified
     Dosage: MATERNAL DOSE: 600 MG, QD
     Route: 064
     Dates: start: 20090110, end: 20100610
  144. ZIDOVUDINE [Suspect]
     Active Substance: ZIDOVUDINE
     Indication: Maternal exposure timing unspecified
     Dosage: 800 MILLIGRAM, QD
     Route: 064
     Dates: start: 20090110, end: 20100610
  145. ZIDOVUDINE [Suspect]
     Active Substance: ZIDOVUDINE
     Indication: Maternal exposure timing unspecified
     Dosage: MATERNAL DOSE: 600 MG, QD
     Route: 064
     Dates: start: 20090110, end: 20100610
  146. ZIDOVUDINE [Suspect]
     Active Substance: ZIDOVUDINE
     Indication: Maternal exposure timing unspecified
     Dosage: 600 MILLIGRAM, QD
     Route: 064
     Dates: start: 20090110, end: 20100610
  147. ZIDOVUDINE [Suspect]
     Active Substance: ZIDOVUDINE
     Indication: Maternal exposure timing unspecified
     Dosage: 800 MILLIGRAM, QD
     Route: 064
     Dates: start: 20100610
  148. ZIDOVUDINE [Suspect]
     Active Substance: ZIDOVUDINE
     Indication: Maternal exposure timing unspecified
     Dosage: MATERNAL DOSE: 600 MG, QD
     Route: 064
     Dates: start: 20090110, end: 20100610
  149. ZIDOVUDINE [Suspect]
     Active Substance: ZIDOVUDINE
     Indication: Maternal exposure timing unspecified
     Dosage: MATERNAL DOSE: 800 MG, QD
     Route: 064
     Dates: start: 20100610, end: 20100610
  150. ZIDOVUDINE [Suspect]
     Active Substance: ZIDOVUDINE
     Indication: Maternal exposure timing unspecified
     Dosage: MATERNAL DOSE: 600 MG, QD
     Route: 064
     Dates: start: 20090110, end: 20100610
  151. ZIDOVUDINE [Suspect]
     Active Substance: ZIDOVUDINE
     Indication: Maternal exposure timing unspecified
     Dosage: MATERNAL DOSE: 600 MG, QD
     Route: 064
     Dates: start: 20090110, end: 20100610
  152. ZIDOVUDINE [Suspect]
     Active Substance: ZIDOVUDINE
     Indication: Maternal exposure timing unspecified
     Dosage: MATERNAL DOSE: 800 MG, QD
     Route: 064
     Dates: start: 20100610, end: 20100610
  153. ZIDOVUDINE [Suspect]
     Active Substance: ZIDOVUDINE
     Indication: Maternal exposure timing unspecified
     Dosage: MATERNAL DOSE: 800 MG, QD
     Route: 064
     Dates: start: 20100610, end: 20100610
  154. ZIDOVUDINE [Suspect]
     Active Substance: ZIDOVUDINE
     Indication: Maternal exposure timing unspecified
     Dosage: MATERNAL DOSE: 600 MG, QD
     Route: 064
     Dates: start: 20090110, end: 20100610
  155. TENOFOVIR [Suspect]
     Active Substance: TENOFOVIR
     Indication: Maternal exposure timing unspecified
     Route: 064
  156. TENOFOVIR [Suspect]
     Active Substance: TENOFOVIR
     Indication: Maternal exposure timing unspecified
     Dosage: MATERNAL DOSE: 300 MG, QD
     Route: 064
     Dates: start: 20100610
  157. TENOFOVIR [Suspect]
     Active Substance: TENOFOVIR
     Indication: Maternal exposure timing unspecified
     Dosage: MATERNAL DOSE: 300 MG, QD
     Route: 064
     Dates: start: 20100610
  158. TENOFOVIR [Suspect]
     Active Substance: TENOFOVIR
     Indication: Maternal exposure timing unspecified
     Dosage: UNK
     Dates: start: 20100610
  159. TENOFOVIR [Suspect]
     Active Substance: TENOFOVIR
     Indication: Maternal exposure timing unspecified
     Dosage: UNK
     Dates: start: 20100610
  160. TENOFOVIR [Suspect]
     Active Substance: TENOFOVIR
     Indication: Maternal exposure timing unspecified
     Dosage: MATERNAL DOSE: 300 MG, QD
     Route: 064
     Dates: start: 20100610
  161. TENOFOVIR [Suspect]
     Active Substance: TENOFOVIR
     Indication: Maternal exposure timing unspecified
     Dosage: UNK
     Dates: start: 20100610
  162. TENOFOVIR [Suspect]
     Active Substance: TENOFOVIR
     Indication: Maternal exposure timing unspecified
     Dosage: UNK
     Dates: start: 20100610
  163. METFORMIN [Suspect]
     Active Substance: METFORMIN HYDROCHLORIDE
     Indication: Maternal exposure timing unspecified
     Route: 064
  164. METFORMIN [Suspect]
     Active Substance: METFORMIN HYDROCHLORIDE
     Indication: Maternal exposure timing unspecified
     Dosage: UNK
     Route: 064
  165. METFORMIN [Suspect]
     Active Substance: METFORMIN HYDROCHLORIDE
     Indication: Maternal exposure timing unspecified
     Dosage: UNK
     Route: 064
  166. METFORMIN [Suspect]
     Active Substance: METFORMIN HYDROCHLORIDE
     Indication: Maternal exposure timing unspecified
     Dosage: UNK
     Route: 064
  167. METFORMIN [Suspect]
     Active Substance: METFORMIN HYDROCHLORIDE
     Indication: Maternal exposure timing unspecified
     Dosage: MATERNAL DOSE: 400 MG, QD
     Route: 064
     Dates: start: 20090101, end: 20100610
  168. METFORMIN [Suspect]
     Active Substance: METFORMIN HYDROCHLORIDE
     Indication: Maternal exposure timing unspecified
     Dosage: UNK
     Route: 064
  169. METFORMIN [Suspect]
     Active Substance: METFORMIN HYDROCHLORIDE
     Indication: Maternal exposure timing unspecified
     Dosage: MATERNAL DOSE: UNK
  170. METFORMIN [Suspect]
     Active Substance: METFORMIN HYDROCHLORIDE
     Indication: Maternal exposure timing unspecified
     Dosage: MATERNAL DOSE: 400 MG, QD
     Route: 064
     Dates: start: 20090101, end: 20100610
  171. METFORMIN [Suspect]
     Active Substance: METFORMIN HYDROCHLORIDE
     Indication: Maternal exposure timing unspecified
     Dosage: UNK
     Route: 064
  172. METFORMIN [Suspect]
     Active Substance: METFORMIN HYDROCHLORIDE
     Indication: Maternal exposure timing unspecified
     Dosage: UNK
     Route: 064
  173. METFORMIN [Suspect]
     Active Substance: METFORMIN HYDROCHLORIDE
     Indication: Maternal exposure timing unspecified
     Dosage: UNK
     Route: 064
  174. METFORMIN [Suspect]
     Active Substance: METFORMIN HYDROCHLORIDE
     Indication: Maternal exposure timing unspecified
     Dosage: UNK
     Route: 064
  175. METFORMIN [Suspect]
     Active Substance: METFORMIN HYDROCHLORIDE
     Indication: Maternal exposure timing unspecified
     Dosage: UNK
     Route: 064
  176. METFORMIN [Suspect]
     Active Substance: METFORMIN HYDROCHLORIDE
     Indication: Maternal exposure timing unspecified
     Dosage: MATERNAL DOSE: UNK
  177. METFORMIN [Suspect]
     Active Substance: METFORMIN HYDROCHLORIDE
     Indication: Maternal exposure timing unspecified
     Dosage: MATERNAL DOSE: UNK
     Route: 064
  178. METFORMIN [Suspect]
     Active Substance: METFORMIN HYDROCHLORIDE
     Indication: Maternal exposure timing unspecified
     Dosage: UNK
     Route: 064
  179. METFORMIN [Suspect]
     Active Substance: METFORMIN HYDROCHLORIDE
     Indication: Maternal exposure timing unspecified
     Dosage: MATERNAL DOSE: 400 MG, QD
     Route: 064
     Dates: start: 20090101, end: 20100610
  180. METFORMIN [Suspect]
     Active Substance: METFORMIN HYDROCHLORIDE
     Indication: Maternal exposure timing unspecified
     Dosage: UNK
     Route: 064
  181. METFORMIN [Suspect]
     Active Substance: METFORMIN HYDROCHLORIDE
     Indication: Maternal exposure timing unspecified
     Dosage: UNK
     Route: 064
  182. METFORMIN [Suspect]
     Active Substance: METFORMIN HYDROCHLORIDE
     Indication: Maternal exposure timing unspecified
     Dosage: UNK
     Route: 064
  183. METFORMIN [Suspect]
     Active Substance: METFORMIN HYDROCHLORIDE
     Indication: Maternal exposure timing unspecified
     Dosage: UNK
     Route: 064
  184. METFORMIN [Suspect]
     Active Substance: METFORMIN HYDROCHLORIDE
     Indication: Maternal exposure timing unspecified
     Dosage: MATERNAL DOSE: UNK
  185. METFORMIN [Suspect]
     Active Substance: METFORMIN HYDROCHLORIDE
     Indication: Maternal exposure timing unspecified
     Dosage: MATERNAL DOSE: UNK
  186. METFORMIN [Suspect]
     Active Substance: METFORMIN HYDROCHLORIDE
     Indication: Maternal exposure timing unspecified
     Dosage: MATERNAL DOSE: 400 MG, QD
     Route: 064
     Dates: start: 20090101, end: 20100610
  187. METFORMIN [Suspect]
     Active Substance: METFORMIN HYDROCHLORIDE
     Indication: Maternal exposure timing unspecified
     Dosage: UNK
     Route: 064
  188. METFORMIN [Suspect]
     Active Substance: METFORMIN HYDROCHLORIDE
     Indication: Maternal exposure timing unspecified
     Dosage: UNK
     Route: 064
  189. METFORMIN [Suspect]
     Active Substance: METFORMIN HYDROCHLORIDE
     Indication: Maternal exposure timing unspecified
     Dosage: UNK
     Route: 064
  190. METFORMIN [Suspect]
     Active Substance: METFORMIN HYDROCHLORIDE
     Indication: Maternal exposure timing unspecified
     Dosage: UNK
     Route: 064
  191. METFORMIN [Suspect]
     Active Substance: METFORMIN HYDROCHLORIDE
     Indication: Maternal exposure timing unspecified
     Dosage: UNK
     Route: 064
  192. ISENTRESS [Suspect]
     Active Substance: RALTEGRAVIR POTASSIUM
     Indication: Maternal exposure timing unspecified
     Route: 064
  193. ISENTRESS [Suspect]
     Active Substance: RALTEGRAVIR POTASSIUM
     Indication: Maternal exposure timing unspecified
     Dosage: 3200 MG, QD (800 MILLIGRAM, QID)
     Route: 064
     Dates: start: 20100610
  194. ISENTRESS [Suspect]
     Active Substance: RALTEGRAVIR POTASSIUM
     Indication: Maternal exposure timing unspecified
     Dosage: UNK
     Dates: start: 20100610
  195. ISENTRESS [Suspect]
     Active Substance: RALTEGRAVIR POTASSIUM
     Indication: Maternal exposure timing unspecified
     Dosage: 3200 MG, QD (800 MILLIGRAM, QID)
     Route: 064
     Dates: start: 20100610
  196. ISENTRESS [Suspect]
     Active Substance: RALTEGRAVIR POTASSIUM
     Indication: Maternal exposure timing unspecified
     Dosage: MATERNAL DOSE: 3200 MG, QD (800 MILLIGRAM, QID)
     Route: 064
     Dates: start: 20100610
  197. ISENTRESS [Suspect]
     Active Substance: RALTEGRAVIR POTASSIUM
     Indication: Maternal exposure timing unspecified
     Dosage: 3200 MG, QD (800 MILLIGRAM, QID)
     Route: 064
     Dates: start: 20100610
  198. ISENTRESS [Suspect]
     Active Substance: RALTEGRAVIR POTASSIUM
     Indication: Maternal exposure timing unspecified
     Dosage: UNK
     Dates: start: 20100610
  199. ISENTRESS [Suspect]
     Active Substance: RALTEGRAVIR POTASSIUM
     Indication: Maternal exposure timing unspecified
     Dosage: MATERNAL DOSE: 3200 MG, QD (800 MILLIGRAM, QID)
     Route: 064
     Dates: start: 20100610
  200. ISENTRESS [Suspect]
     Active Substance: RALTEGRAVIR POTASSIUM
     Indication: Maternal exposure timing unspecified
     Dosage: MATERNAL DOSE: 3200 MG`, QD (800 MILLIGRAM, QID)
     Route: 064
     Dates: start: 20100610
  201. ISENTRESS [Suspect]
     Active Substance: RALTEGRAVIR POTASSIUM
     Indication: Maternal exposure timing unspecified
     Dosage: 3200 MG, QD (800 MILLIGRAM, QID)
     Route: 064
     Dates: start: 20100610
  202. ISENTRESS [Suspect]
     Active Substance: RALTEGRAVIR POTASSIUM
     Indication: Maternal exposure timing unspecified
     Dosage: UNK
     Dates: start: 20100610
  203. ISENTRESS [Suspect]
     Active Substance: RALTEGRAVIR POTASSIUM
     Indication: Maternal exposure timing unspecified
     Dosage: UNK
     Dates: start: 20100610
  204. ISENTRESS [Suspect]
     Active Substance: RALTEGRAVIR POTASSIUM
     Indication: Maternal exposure timing unspecified
     Dosage: 3200 MG, QD (800 MILLIGRAM, QID)
     Route: 064
     Dates: start: 20100610
  205. LABETALOL [Suspect]
     Active Substance: LABETALOL\LABETALOL HYDROCHLORIDE
     Indication: Maternal exposure timing unspecified
     Route: 064
  206. LABETALOL [Suspect]
     Active Substance: LABETALOL\LABETALOL HYDROCHLORIDE
     Indication: Maternal exposure timing unspecified
     Dosage: UNK
     Route: 064
  207. LABETALOL [Suspect]
     Active Substance: LABETALOL\LABETALOL HYDROCHLORIDE
     Indication: Maternal exposure timing unspecified
     Dosage: UNK
     Route: 064
  208. LABETALOL [Suspect]
     Active Substance: LABETALOL\LABETALOL HYDROCHLORIDE
     Indication: Maternal exposure timing unspecified
     Dosage: MATERNAL DOSE: 300 MG
     Route: 064
     Dates: start: 20090101, end: 20100610
  209. LABETALOL [Suspect]
     Active Substance: LABETALOL\LABETALOL HYDROCHLORIDE
     Indication: Maternal exposure timing unspecified
     Dosage: MATERNAL DOSE: 300 MG
     Route: 064
     Dates: start: 20090101, end: 20100610
  210. LABETALOL [Suspect]
     Active Substance: LABETALOL\LABETALOL HYDROCHLORIDE
     Indication: Maternal exposure timing unspecified
     Dosage: MATERNAL DOSE: UNK
  211. LABETALOL [Suspect]
     Active Substance: LABETALOL\LABETALOL HYDROCHLORIDE
     Indication: Maternal exposure timing unspecified
     Dosage: MATERNAL DOSE: UNK
  212. LABETALOL [Suspect]
     Active Substance: LABETALOL\LABETALOL HYDROCHLORIDE
     Indication: Maternal exposure timing unspecified
     Dosage: MATERNAL DOSE: 300 MG
     Route: 064
     Dates: start: 20090101, end: 20100610
  213. LABETALOL [Suspect]
     Active Substance: LABETALOL\LABETALOL HYDROCHLORIDE
     Indication: Maternal exposure timing unspecified
     Dosage: UNK (MATERNAL DOSE: UNKNOWN)
     Route: 064
  214. LABETALOL [Suspect]
     Active Substance: LABETALOL\LABETALOL HYDROCHLORIDE
     Indication: Maternal exposure timing unspecified
     Dosage: UNK
     Route: 064
  215. LABETALOL [Suspect]
     Active Substance: LABETALOL\LABETALOL HYDROCHLORIDE
     Indication: Maternal exposure timing unspecified
     Dosage: UNK
     Route: 064
  216. LABETALOL [Suspect]
     Active Substance: LABETALOL\LABETALOL HYDROCHLORIDE
     Indication: Maternal exposure timing unspecified
     Dosage: MATERNAL DOSE: UNK
     Route: 064
  217. LABETALOL [Suspect]
     Active Substance: LABETALOL\LABETALOL HYDROCHLORIDE
     Indication: Maternal exposure timing unspecified
     Dates: start: 20090101, end: 20100610
  218. LABETALOL [Suspect]
     Active Substance: LABETALOL\LABETALOL HYDROCHLORIDE
     Indication: Maternal exposure timing unspecified
     Dosage: UNK
     Route: 064
  219. LABETALOL [Suspect]
     Active Substance: LABETALOL\LABETALOL HYDROCHLORIDE
     Indication: Maternal exposure timing unspecified
     Dosage: UNK
     Route: 064
  220. LABETALOL [Suspect]
     Active Substance: LABETALOL\LABETALOL HYDROCHLORIDE
     Indication: Maternal exposure timing unspecified
     Dosage: MATERNAL DOSE: UNK
  221. LABETALOL [Suspect]
     Active Substance: LABETALOL\LABETALOL HYDROCHLORIDE
     Indication: Maternal exposure timing unspecified
     Dosage: MATERNAL DOSE: 300 MG
     Route: 064
     Dates: start: 20090101, end: 20100610
  222. LABETALOL [Suspect]
     Active Substance: LABETALOL\LABETALOL HYDROCHLORIDE
     Indication: Maternal exposure timing unspecified
     Dosage: UNK (MATERNAL DOSE: UNKNOWN)
     Route: 064
  223. LABETALOL [Suspect]
     Active Substance: LABETALOL\LABETALOL HYDROCHLORIDE
     Indication: Maternal exposure timing unspecified
     Dosage: MATERNAL DOSE: 300 MG
     Route: 064
     Dates: start: 20090101, end: 20100610
  224. LABETALOL [Suspect]
     Active Substance: LABETALOL\LABETALOL HYDROCHLORIDE
     Indication: Maternal exposure timing unspecified
     Dosage: UNK
     Route: 064
  225. LABETALOL [Suspect]
     Active Substance: LABETALOL\LABETALOL HYDROCHLORIDE
     Indication: Maternal exposure timing unspecified
     Dosage: UNK (MATERNAL DOSE: UNKNOWN)
     Route: 064
  226. LABETALOL [Suspect]
     Active Substance: LABETALOL\LABETALOL HYDROCHLORIDE
     Indication: Maternal exposure timing unspecified
     Dosage: MATERNAL DOSE: UNK
  227. LABETALOL [Suspect]
     Active Substance: LABETALOL\LABETALOL HYDROCHLORIDE
     Indication: Maternal exposure timing unspecified
     Dosage: UNK
     Route: 064
  228. EMTRICITABINE [Suspect]
     Active Substance: EMTRICITABINE
     Indication: Maternal exposure timing unspecified
  229. EMTRICITABINE [Suspect]
     Active Substance: EMTRICITABINE
     Indication: Maternal exposure timing unspecified
     Dosage: 1 DOSAGE FORM, QD (1 TABLET/CAPSULE, QD)
     Route: 064
     Dates: start: 20171006
  230. EMTRICITABINE [Suspect]
     Active Substance: EMTRICITABINE
     Indication: Maternal exposure timing unspecified
     Dosage: MATERNAL DOSE: 1 DOSAGE FORM, QD
     Route: 064
     Dates: start: 20180205
  231. INSULIN ASPART [Suspect]
     Active Substance: INSULIN ASPART
     Indication: Maternal exposure timing unspecified
     Route: 064
  232. INSULIN ASPART [Suspect]
     Active Substance: INSULIN ASPART
     Indication: Maternal exposure timing unspecified
     Dosage: MATERNAL DOSE: UNK
     Route: 064
  233. INSULIN ASPART [Suspect]
     Active Substance: INSULIN ASPART
     Indication: Maternal exposure timing unspecified
     Dosage: UNK
     Route: 064
  234. INSULIN ASPART [Suspect]
     Active Substance: INSULIN ASPART
     Indication: Maternal exposure timing unspecified
     Dosage: UNK
     Route: 064
  235. INSULIN ASPART [Suspect]
     Active Substance: INSULIN ASPART
     Indication: Maternal exposure timing unspecified
     Dosage: UNK
     Route: 064
  236. INSULIN ASPART [Suspect]
     Active Substance: INSULIN ASPART
     Indication: Maternal exposure timing unspecified
     Dosage: MATERNAL DOSE: UNK
     Route: 064
  237. INSULIN ASPART [Suspect]
     Active Substance: INSULIN ASPART
     Indication: Maternal exposure timing unspecified
     Dosage: MATERNAL DOSE: UNK
     Route: 064
  238. INSULIN ASPART [Suspect]
     Active Substance: INSULIN ASPART
     Indication: Maternal exposure timing unspecified
     Dosage: MATERNAL DOSE: UNKNOWN
     Route: 064
  239. INSULIN ASPART [Suspect]
     Active Substance: INSULIN ASPART
     Indication: Maternal exposure timing unspecified
     Dosage: UNK
     Route: 064
  240. INSULIN ASPART [Suspect]
     Active Substance: INSULIN ASPART
     Indication: Maternal exposure timing unspecified
     Dosage: MATERNAL DOSE: UNK
     Route: 064
  241. INSULIN ASPART [Suspect]
     Active Substance: INSULIN ASPART
     Indication: Maternal exposure timing unspecified
     Dosage: UNK
     Route: 064
  242. INSULIN ASPART [Suspect]
     Active Substance: INSULIN ASPART
     Indication: Maternal exposure timing unspecified
     Dosage: UNK
     Route: 064
  243. INSULIN ASPART [Suspect]
     Active Substance: INSULIN ASPART
     Indication: Maternal exposure timing unspecified
     Dosage: UNK
     Route: 064
  244. INSULIN ASPART [Suspect]
     Active Substance: INSULIN ASPART
     Indication: Maternal exposure timing unspecified
     Dosage: MATERNAL DOSE: UNK
     Route: 064
  245. NEVIRAPINE [Suspect]
     Active Substance: NEVIRAPINE
     Indication: Maternal exposure timing unspecified
     Route: 064
  246. NEVIRAPINE [Suspect]
     Active Substance: NEVIRAPINE
     Indication: Maternal exposure timing unspecified
     Dosage: MATERNAL EXPOSURE
     Route: 064
     Dates: start: 20090101, end: 20100610
  247. NEVIRAPINE [Suspect]
     Active Substance: NEVIRAPINE
     Indication: Maternal exposure timing unspecified
     Dosage: MATERNAL DOSE:400 MG, QD
     Route: 064
     Dates: start: 20090101, end: 20100610
  248. NEVIRAPINE [Suspect]
     Active Substance: NEVIRAPINE
     Indication: Maternal exposure timing unspecified
     Dosage: MATERNAL EXPOSURE: 400 MG, QD
     Route: 064
     Dates: start: 20090101, end: 20100610
  249. NEVIRAPINE [Suspect]
     Active Substance: NEVIRAPINE
     Indication: Maternal exposure timing unspecified
     Dosage: MATERNAL DOSE: 400 MG, QD
     Route: 064
  250. FOLATE SODIUM [Suspect]
     Active Substance: FOLATE SODIUM
     Indication: Maternal exposure timing unspecified
     Route: 064
  251. FOLATE SODIUM [Suspect]
     Active Substance: FOLATE SODIUM
     Indication: Maternal exposure timing unspecified
     Dosage: 1 DOSAGE FORM, QD ((1 TABLET/CAPSULE, DAILY)
     Route: 064
  252. FOLATE SODIUM [Suspect]
     Active Substance: FOLATE SODIUM
     Indication: Maternal exposure timing unspecified
     Dosage: MATERNAL DOSE: UNK
     Route: 064
  253. FOLATE SODIUM [Suspect]
     Active Substance: FOLATE SODIUM
     Indication: Maternal exposure timing unspecified
     Dosage: UNK
     Route: 064
  254. FOLATE SODIUM [Suspect]
     Active Substance: FOLATE SODIUM
     Indication: Maternal exposure timing unspecified
     Dosage: UNK
     Route: 064
  255. FOLATE SODIUM [Suspect]
     Active Substance: FOLATE SODIUM
     Indication: Maternal exposure timing unspecified
     Dosage: UNK
     Route: 064
  256. FOLATE SODIUM [Suspect]
     Active Substance: FOLATE SODIUM
     Indication: Maternal exposure timing unspecified
     Dosage: UNK
     Route: 064
  257. FOLATE SODIUM [Suspect]
     Active Substance: FOLATE SODIUM
     Indication: Maternal exposure timing unspecified
     Dosage: MATERNAL DOSE: UNK
     Route: 064
  258. FOLATE SODIUM [Suspect]
     Active Substance: FOLATE SODIUM
     Indication: Maternal exposure timing unspecified
     Dosage: UNK
     Route: 064
  259. FOLATE SODIUM [Suspect]
     Active Substance: FOLATE SODIUM
     Indication: Maternal exposure timing unspecified
     Dosage: MATERNAL DOSE: UNK
     Route: 064
  260. FOLATE SODIUM [Suspect]
     Active Substance: FOLATE SODIUM
     Indication: Maternal exposure timing unspecified
     Dosage: UNK
     Route: 064
  261. FOLATE SODIUM [Suspect]
     Active Substance: FOLATE SODIUM
     Indication: Maternal exposure timing unspecified
     Dosage: MATERNAL DOSE: UNK
     Route: 064
  262. FOLATE SODIUM [Suspect]
     Active Substance: FOLATE SODIUM
     Indication: Maternal exposure timing unspecified
     Dosage: UNK
     Route: 064
  263. FOLATE SODIUM [Suspect]
     Active Substance: FOLATE SODIUM
     Indication: Maternal exposure timing unspecified
     Dosage: UNK
     Route: 064
  264. FOLATE SODIUM [Suspect]
     Active Substance: FOLATE SODIUM
     Indication: Maternal exposure timing unspecified
     Dosage: MATERNAL DOSE: UNK
     Route: 064
  265. FOLATE SODIUM [Suspect]
     Active Substance: FOLATE SODIUM
     Indication: Maternal exposure timing unspecified
     Dosage: UNK
     Route: 064
  266. FOLATE SODIUM [Suspect]
     Active Substance: FOLATE SODIUM
     Indication: Maternal exposure timing unspecified
     Dosage: UNK
     Route: 064
  267. FOLATE SODIUM [Suspect]
     Active Substance: FOLATE SODIUM
     Indication: Maternal exposure timing unspecified
     Dosage: MATERNAL DOSE: UNK
     Route: 064
  268. FOLATE SODIUM [Suspect]
     Active Substance: FOLATE SODIUM
     Indication: Maternal exposure timing unspecified
     Dosage: UNK
     Route: 064
  269. FOLATE SODIUM [Suspect]
     Active Substance: FOLATE SODIUM
     Indication: Maternal exposure timing unspecified
     Dosage: UNK
     Route: 064
  270. FOLATE SODIUM [Suspect]
     Active Substance: FOLATE SODIUM
     Indication: Maternal exposure timing unspecified
     Dosage: MATERNAL DOSE: UNK
     Route: 064
  271. VITAMIN B12 [Suspect]
     Active Substance: CYANOCOBALAMIN
     Indication: Maternal exposure timing unspecified
     Route: 064
  272. VITAMIN B12 [Suspect]
     Active Substance: CYANOCOBALAMIN
     Indication: Maternal exposure timing unspecified
     Dosage: MATERNAL DOSE: 800 MG, QD
     Route: 064
     Dates: start: 20090110, end: 20100610
  273. VITAMIN B12 [Suspect]
     Active Substance: CYANOCOBALAMIN
     Indication: Maternal exposure timing unspecified
     Dosage: MATERNAL DOSE: UNK
     Route: 064
     Dates: start: 20100610
  274. VITAMIN B12 [Suspect]
     Active Substance: CYANOCOBALAMIN
     Indication: Maternal exposure timing unspecified
     Dosage: MATERNAL DOSE: UNK
     Route: 064
     Dates: start: 20100610
  275. VITAMIN B12 [Suspect]
     Active Substance: CYANOCOBALAMIN
     Indication: Maternal exposure timing unspecified
     Dosage: MATERNAL DOSE: UNK
     Route: 064
  276. VITAMIN B12 [Suspect]
     Active Substance: CYANOCOBALAMIN
     Indication: Maternal exposure timing unspecified
     Dosage: MATERNAL DOSE: UNK
     Route: 064
     Dates: start: 20100610
  277. VITAMIN B12 [Suspect]
     Active Substance: CYANOCOBALAMIN
     Indication: Maternal exposure timing unspecified
     Dosage: MATERNAL DOSE: UNKNOWN
     Route: 064
     Dates: start: 20100610
  278. VITAMIN B12 [Suspect]
     Active Substance: CYANOCOBALAMIN
     Indication: Maternal exposure timing unspecified
     Dosage: MATERNAL DOSE: UNK
     Route: 064
     Dates: start: 20100610
  279. VITAMIN B12 [Suspect]
     Active Substance: CYANOCOBALAMIN
     Indication: Maternal exposure timing unspecified
     Dosage: MATERNAL DOSE: UNK
     Route: 064
  280. VITAMIN B12 [Suspect]
     Active Substance: CYANOCOBALAMIN
     Indication: Maternal exposure timing unspecified
     Dosage: MATERNAL DOSE: UNK
     Route: 064
     Dates: start: 20100610
  281. VITAMIN B12 [Suspect]
     Active Substance: CYANOCOBALAMIN
     Indication: Maternal exposure timing unspecified
     Dosage: MATERNAL DOSE: UNK
     Route: 064
  282. LOPINAVIR [Suspect]
     Active Substance: LOPINAVIR
     Indication: Maternal exposure timing unspecified
     Route: 064
  283. LOPINAVIR [Suspect]
     Active Substance: LOPINAVIR
     Indication: Maternal exposure timing unspecified
     Dosage: MATERNAL DOSE: UNK
     Route: 064
     Dates: start: 20100610
  284. LOPINAVIR [Suspect]
     Active Substance: LOPINAVIR
     Indication: Maternal exposure timing unspecified
     Dosage: UNK
     Route: 064
     Dates: start: 20100610
  285. LOPINAVIR [Suspect]
     Active Substance: LOPINAVIR
     Indication: Maternal exposure timing unspecified
     Dosage: UNK
     Route: 064
     Dates: start: 20100610
  286. LOPINAVIR [Suspect]
     Active Substance: LOPINAVIR
     Indication: Maternal exposure timing unspecified
     Dosage: MATERNAL DOSE: UNK
     Route: 064
     Dates: start: 20100610
  287. LOPINAVIR [Suspect]
     Active Substance: LOPINAVIR
     Indication: Maternal exposure timing unspecified
     Dosage: UNK
     Route: 064
     Dates: start: 20100610
  288. LOPINAVIR [Suspect]
     Active Substance: LOPINAVIR
     Indication: Maternal exposure timing unspecified
     Dosage: MATERNAL DOSE: UNK
     Route: 064
     Dates: start: 20100610
  289. LOPINAVIR [Suspect]
     Active Substance: LOPINAVIR
     Indication: Maternal exposure timing unspecified
     Dosage: UNK
     Route: 064
     Dates: start: 20100610
  290. LOPINAVIR [Suspect]
     Active Substance: LOPINAVIR
     Indication: Maternal exposure timing unspecified
     Dosage: MATERNAL DOSE: UNK
     Route: 064
     Dates: start: 20100610
  291. LOPINAVIR [Suspect]
     Active Substance: LOPINAVIR
     Indication: Maternal exposure timing unspecified
     Dosage: UNK
     Route: 064
     Dates: start: 20100610
  292. LOPINAVIR\RITONAVIR [Suspect]
     Active Substance: LOPINAVIR\RITONAVIR
     Indication: Maternal exposure timing unspecified
     Dosage: MATERNAL DOSE: UNK
  293. LOPINAVIR\RITONAVIR [Suspect]
     Active Substance: LOPINAVIR\RITONAVIR
     Indication: Maternal exposure timing unspecified
     Dosage: MATERNAL DOSE: UNK
     Dates: end: 20100610
  294. LOPINAVIR\RITONAVIR [Suspect]
     Active Substance: LOPINAVIR\RITONAVIR
     Indication: Maternal exposure timing unspecified
     Dosage: MATERNAL DOSE: UNK
     Route: 064
     Dates: start: 20100610
  295. LOPINAVIR\RITONAVIR [Suspect]
     Active Substance: LOPINAVIR\RITONAVIR
     Indication: Maternal exposure timing unspecified
     Dosage: MATERNAL DOSE: UNK
     Route: 064
     Dates: start: 20100610
  296. LOPINAVIR\RITONAVIR [Suspect]
     Active Substance: LOPINAVIR\RITONAVIR
     Indication: Maternal exposure timing unspecified
     Dosage: MATERNAL DOSE: UNK
     Route: 064
     Dates: end: 20100610
  297. LOPINAVIR\RITONAVIR [Suspect]
     Active Substance: LOPINAVIR\RITONAVIR
     Indication: Maternal exposure timing unspecified
     Dosage: MATERNAL DOSE: UNK
     Route: 064
     Dates: start: 20100610
  298. LOPINAVIR\RITONAVIR [Suspect]
     Active Substance: LOPINAVIR\RITONAVIR
     Indication: Maternal exposure timing unspecified
     Dosage: MATERNAL DOSE: UNK
     Route: 064
     Dates: start: 20100610
  299. LOPINAVIR\RITONAVIR [Suspect]
     Active Substance: LOPINAVIR\RITONAVIR
     Indication: Maternal exposure timing unspecified
     Dosage: MATERNAL DOSE: UNK
     Route: 064
     Dates: end: 20100610
  300. LOPINAVIR\RITONAVIR [Suspect]
     Active Substance: LOPINAVIR\RITONAVIR
     Indication: Maternal exposure timing unspecified
     Dosage: MATERNAL DOSE: 1 DOSAGE FORM, QD
     Route: 064
     Dates: start: 20100610
  301. LOPINAVIR\RITONAVIR [Suspect]
     Active Substance: LOPINAVIR\RITONAVIR
     Indication: Maternal exposure timing unspecified
     Dosage: MATERNAL DOSE: UNK
     Route: 064
     Dates: start: 20100610
  302. LOPINAVIR\RITONAVIR [Suspect]
     Active Substance: LOPINAVIR\RITONAVIR
     Indication: Maternal exposure timing unspecified
     Dosage: MATERNAL DOSE: UNK,QD
     Route: 064
     Dates: start: 20100610
  303. LOPINAVIR\RITONAVIR [Suspect]
     Active Substance: LOPINAVIR\RITONAVIR
     Indication: Maternal exposure timing unspecified
     Dosage: MATERNAL DOSE: UNK (PATIENT WAS NOT TAKING MEDICINE AT CONCEPTION)
     Route: 064
     Dates: start: 20100610
  304. LOPINAVIR\RITONAVIR [Suspect]
     Active Substance: LOPINAVIR\RITONAVIR
     Indication: Maternal exposure timing unspecified
     Dosage: MATERNAL DOSE: UNK
     Route: 064
  305. LOPINAVIR\RITONAVIR [Suspect]
     Active Substance: LOPINAVIR\RITONAVIR
     Indication: Maternal exposure timing unspecified
     Dosage: MATERNAL DOSE: UNKNOWN
     Route: 064
     Dates: start: 20100610, end: 20100610
  306. LOPINAVIR\RITONAVIR [Suspect]
     Active Substance: LOPINAVIR\RITONAVIR
     Indication: Maternal exposure timing unspecified
     Dosage: MATERNAL DOSE: UNK
     Route: 064
     Dates: start: 20100610
  307. LOPINAVIR\RITONAVIR [Suspect]
     Active Substance: LOPINAVIR\RITONAVIR
     Indication: Maternal exposure timing unspecified
     Dosage: MATERNAL DOSE: UNK
     Route: 064
     Dates: start: 20100610
  308. LOPINAVIR\RITONAVIR [Suspect]
     Active Substance: LOPINAVIR\RITONAVIR
     Indication: Maternal exposure timing unspecified
     Dosage: MATERNAL DOSE: UNK
     Route: 064
     Dates: end: 20100610
  309. LOPINAVIR\RITONAVIR [Suspect]
     Active Substance: LOPINAVIR\RITONAVIR
     Indication: Maternal exposure timing unspecified
     Dosage: MATERNAL DOSE: UNK
     Route: 064
     Dates: start: 20100610
  310. LOPINAVIR\RITONAVIR [Suspect]
     Active Substance: LOPINAVIR\RITONAVIR
     Indication: Maternal exposure timing unspecified
     Dosage: MATERNAL DOSE: UNK
     Route: 064
     Dates: start: 20100610
  311. LOPINAVIR\RITONAVIR [Suspect]
     Active Substance: LOPINAVIR\RITONAVIR
     Indication: Maternal exposure timing unspecified
     Dosage: MATERNAL DOSE: UNK
     Route: 064
     Dates: end: 20100610
  312. CYANOCOBALAMIN [Suspect]
     Active Substance: CYANOCOBALAMIN
     Indication: Maternal exposure timing unspecified
     Route: 064
  313. CYANOCOBALAMIN [Suspect]
     Active Substance: CYANOCOBALAMIN
     Indication: Maternal exposure timing unspecified
     Dosage: MATERNAL DOSE: UNK
     Route: 064
  314. CYANOCOBALAMIN [Suspect]
     Active Substance: CYANOCOBALAMIN
     Indication: Maternal exposure timing unspecified
     Dosage: MATERNAL DOSE: 800 MG, QD
     Route: 064
     Dates: start: 20090110, end: 20100610
  315. CYANOCOBALAMIN [Suspect]
     Active Substance: CYANOCOBALAMIN
     Indication: Maternal exposure timing unspecified
     Dosage: MATERNAL DOSE: UNK
     Route: 064
     Dates: start: 20100610
  316. CYANOCOBALAMIN [Suspect]
     Active Substance: CYANOCOBALAMIN
     Indication: Maternal exposure timing unspecified
     Dosage: MATERNAL DOSE: 800 MG, QD
     Route: 064
     Dates: start: 20090110, end: 20100610
  317. CYANOCOBALAMIN [Suspect]
     Active Substance: CYANOCOBALAMIN
     Indication: Maternal exposure timing unspecified
     Dosage: MATERNAL DOSE: UNK
     Route: 064
     Dates: start: 20100610
  318. CYANOCOBALAMIN [Suspect]
     Active Substance: CYANOCOBALAMIN
     Indication: Maternal exposure timing unspecified
     Dosage: MATERNAL DOSE: UNK
     Route: 064
  319. CYANOCOBALAMIN [Suspect]
     Active Substance: CYANOCOBALAMIN
     Indication: Maternal exposure timing unspecified
     Dosage: UNK
     Route: 065
  320. CYANOCOBALAMIN [Suspect]
     Active Substance: CYANOCOBALAMIN
     Indication: Maternal exposure timing unspecified
     Dosage: MATERNAL DOSE: 800 MG, QD
     Route: 064
     Dates: start: 20090110, end: 20100610
  321. CYANOCOBALAMIN [Suspect]
     Active Substance: CYANOCOBALAMIN
     Indication: Maternal exposure timing unspecified
     Dosage: MATERNAL DOSE: UNK
     Route: 064
     Dates: start: 20100610
  322. CYANOCOBALAMIN [Suspect]
     Active Substance: CYANOCOBALAMIN
     Indication: Maternal exposure timing unspecified
     Dosage: MATERNAL DOSE: UNK
     Route: 064
  323. CYANOCOBALAMIN [Suspect]
     Active Substance: CYANOCOBALAMIN
     Indication: Maternal exposure timing unspecified
     Dosage: MATERNAL DOSE: UNK
     Route: 064
  324. CYANOCOBALAMIN [Suspect]
     Active Substance: CYANOCOBALAMIN
     Indication: Maternal exposure timing unspecified
     Dosage: MATERNAL DOSE: 800 MG, QD
     Route: 064
     Dates: start: 20090110, end: 20100610
  325. CYANOCOBALAMIN [Suspect]
     Active Substance: CYANOCOBALAMIN
     Indication: Maternal exposure timing unspecified
     Dosage: MATERNAL DOSE: UNK
     Route: 064
     Dates: start: 20100610
  326. RALTEGRAVIR [Suspect]
     Active Substance: RALTEGRAVIR
     Indication: Maternal exposure timing unspecified
     Route: 064
  327. TENOFOVIR DISOPROXIL FUMARATE [Suspect]
     Active Substance: TENOFOVIR DISOPROXIL FUMARATE
     Indication: Maternal exposure timing unspecified
     Route: 064
  328. TENOFOVIR DISOPROXIL FUMARATE [Suspect]
     Active Substance: TENOFOVIR DISOPROXIL FUMARATE
     Indication: Maternal exposure timing unspecified
     Dosage: THERAPY START DATE 05-FEB-2018
  329. TENOFOVIR DISOPROXIL FUMARATE [Suspect]
     Active Substance: TENOFOVIR DISOPROXIL FUMARATE
     Indication: Maternal exposure timing unspecified
     Dosage: 1 DF, MATERNAL DOSE: 1 UG/LITRE,
     Route: 064
     Dates: start: 20171006, end: 20180205
  330. TENOFOVIR DISOPROXIL FUMARATE [Suspect]
     Active Substance: TENOFOVIR DISOPROXIL FUMARATE
     Indication: Maternal exposure timing unspecified
     Dosage: 1 DOSAGE FORM, QD THERAPY DATE 06-OCT-2017
     Dates: end: 20180205
  331. TENOFOVIR DISOPROXIL FUMARATE [Suspect]
     Active Substance: TENOFOVIR DISOPROXIL FUMARATE
     Indication: Maternal exposure timing unspecified
     Dosage: 1 DF, QD
     Dates: start: 20171006
  332. TENOFOVIR DISOPROXIL FUMARATE [Suspect]
     Active Substance: TENOFOVIR DISOPROXIL FUMARATE
     Indication: Maternal exposure timing unspecified
     Dosage: 1 DOSAGE FORM, QD
     Route: 064
     Dates: start: 20180205
  333. TENOFOVIR DISOPROXIL FUMARATE [Suspect]
     Active Substance: TENOFOVIR DISOPROXIL FUMARATE
     Indication: Maternal exposure timing unspecified
     Dosage: MATERNAL DOSE: 1 DOSAGE FORM, QD
     Route: 064

REACTIONS (16)
  - Cleft lip and palate [Fatal]
  - Trisomy 18 [Fatal]
  - Ultrasound antenatal screen [Fatal]
  - Hydrops foetalis [Fatal]
  - Foetal exposure during pregnancy [Fatal]
  - Aspartate aminotransferase increased [Fatal]
  - Alanine aminotransferase increased [Fatal]
  - Exposure during pregnancy [Unknown]
  - Maternal exposure during pregnancy [Recovered/Resolved]
  - Off label use [Fatal]
  - Ultrasound antenatal screen [Fatal]
  - Hepatic cytolysis [Fatal]
  - Intentional product use issue [Unknown]
  - Abortion spontaneous [Recovered/Resolved]
  - Caesarean section [Unknown]
  - Foetal exposure during pregnancy [Fatal]

NARRATIVE: CASE EVENT DATE: 20100629
